FAERS Safety Report 22522318 (Version 1)
Quarter: 2023Q2

REPORT INFORMATION
  Report Type: Spontaneous
  Country: GR (occurrence: GR)
  Receive Date: 20230605
  Receipt Date: 20230605
  Transmission Date: 20230721
  Serious: Yes (Other)
  Sender: FDA-Public Use
  Company Number: GR-002147023-NVSC2023GR125496

PATIENT
  Age: 51 Year
  Sex: Female
  Weight: 67 kg

DRUGS (3)
  1. SECUKINUMAB [Suspect]
     Active Substance: SECUKINUMAB
     Indication: Product used for unknown indication
     Dosage: 150 MG
     Route: 065
  2. METHOTREXATE [Concomitant]
     Active Substance: METHOTREXATE
     Indication: Product used for unknown indication
     Dosage: 20 MG, EVERY 15 DAYS
     Route: 058
  3. ETANERCEPT [Concomitant]
     Active Substance: ETANERCEPT
     Indication: Product used for unknown indication
     Dosage: UNK
     Route: 065

REACTIONS (15)
  - Osteoporotic fracture [Unknown]
  - Crohn^s disease [Unknown]
  - Vulvovaginal mycotic infection [Recovering/Resolving]
  - Fibromyalgia [Unknown]
  - Sacroiliac joint dysfunction [Recovering/Resolving]
  - Back pain [Recovering/Resolving]
  - Intervertebral disc protrusion [Unknown]
  - Joint effusion [Unknown]
  - Bone swelling [Unknown]
  - Tenosynovitis [Unknown]
  - Sacroiliitis [Unknown]
  - Rash [Unknown]
  - Erythema nodosum [Unknown]
  - Arthritis [Recovering/Resolving]
  - Candida infection [Recovering/Resolving]

NARRATIVE: CASE EVENT DATE: 20160101
